FAERS Safety Report 7804637-9 (Version None)
Quarter: 2011Q4

REPORT INFORMATION
  Report Type: 
  Country: None (occurrence: None)
  Receive Date: 20111010
  Receipt Date: 20110929
  Transmission Date: 20120403
  Serious: Yes (Hospitalization)
  Sender: FDA-Public Use
  Company Number: SE-UCBSA-028604

PATIENT
  Age: 24 Hour
  Sex: Female

DRUGS (3)
  1. CIMZIA [Suspect]
     Indication: CROHN'S DISEASE
     Route: 064
  2. FERINJECT [Concomitant]
     Route: 064
     Dates: start: 20101027, end: 20101027
  3. FERINJECT [Concomitant]
     Route: 064
     Dates: start: 20110120, end: 20110120

REACTIONS (2)
  - NEONATAL RESPIRATORY DISTRESS SYNDROME [None]
  - MATERNAL EXPOSURE DURING PREGNANCY [None]
